FAERS Safety Report 5723444-4 (Version None)
Quarter: 2008Q2

REPORT INFORMATION
  Report Type: 
  Country: None (occurrence: None)
  Receive Date: 20080425
  Receipt Date: 20080409
  Transmission Date: 20081010
  Serious: No
  Sender: FDA-Public Use
  Company Number: 2008S1006385

PATIENT
  Sex: Male

DRUGS (1)
  1. AZATHIOPRINE [Suspect]
     Indication: IMMUNOSUPPRESSANT DRUG THERAPY

REACTIONS (1)
  - SQUAMOUS CELL CARCINOMA [None]
